FAERS Safety Report 7634675 (Version 4)
Quarter: 2012Q4

REPORT INFORMATION
  Report Type: 
  Country: CA (occurrence: CA)
  Receive Date: 20101020
  Receipt Date: 20120918
  Transmission Date: 20130627
  Serious: Yes (Hospitalization)
  Sender: FDA-Public Use
  Company Number: PHHY2010CA67425

PATIENT
  Age: 94 Year
  Sex: Female

DRUGS (4)
  1. ACLASTA [Suspect]
     Indication: OSTEOPOROSIS
     Route: 042
     Dates: start: 20081112
  2. ACLASTA [Suspect]
     Route: 042
     Dates: start: 20091116
  3. ACLASTA [Suspect]
     Route: 042
     Dates: start: 20110207
  4. ACLASTA [Suspect]
     Route: 042
     Dates: start: 20120303

REACTIONS (7)
  - Myocardial infarction [Unknown]
  - Hip fracture [Unknown]
  - Fall [Unknown]
  - Clavicle fracture [Unknown]
  - Delusion [Unknown]
  - Blood 25-hydroxycholecalciferol decreased [Unknown]
  - Glomerular filtration rate decreased [Unknown]
